FAERS Safety Report 12573368 (Version 1)
Quarter: 2016Q3

REPORT INFORMATION
  Report Type: Spontaneous
  Country: US (occurrence: US)
  Receive Date: 20160720
  Receipt Date: 20160720
  Transmission Date: 20161109
  Serious: Yes (Other)
  Sender: FDA-Public Use
  Company Number: US-ACTAVIS-2016-14491

PATIENT
  Sex: Female

DRUGS (1)
  1. NEXT CHOICE ONE DOSE [Suspect]
     Active Substance: LEVONORGESTREL
     Indication: POST COITAL CONTRACEPTION
     Dosage: UNKNOWN
     Route: 065
     Dates: start: 201408, end: 201408

REACTIONS (5)
  - Pregnancy after post coital contraception [Unknown]
  - Fallopian tube disorder [Unknown]
  - Abortion [Unknown]
  - Drug ineffective [Unknown]
  - Ectopic pregnancy [Unknown]

NARRATIVE: CASE EVENT DATE: 201408
